FAERS Safety Report 4377277-4 (Version None)
Quarter: 2004Q2

REPORT INFORMATION
  Report Type: 
  Country: None (occurrence: None)
  Receive Date: 20040615
  Receipt Date: 20040603
  Transmission Date: 20050107
  Serious: Yes (Other)
  Sender: FDA-Public Use
  Company Number: US-JNJFOC-20030602863

PATIENT
  Sex: Female
  Weight: 53.07 kg

DRUGS (10)
  1. REMICADE [Suspect]
     Route: 042
  2. REMICADE [Suspect]
     Indication: RHEUMATOID ARTHRITIS
     Route: 042
  3. REMICADE [Suspect]
     Route: 042
  4. DELOBID [Concomitant]
  5. UNITHROID [Concomitant]
  6. UNITHROID [Concomitant]
  7. LEVOTHYROID [Concomitant]
  8. LOVASTATIN [Concomitant]
  9. CALCIUM [Concomitant]
  10. VIOXX [Concomitant]

REACTIONS (1)
  - MYCOBACTERIUM AVIUM COMPLEX INFECTION [None]
